FAERS Safety Report 8251461-1 (Version None)
Quarter: 2012Q1

REPORT INFORMATION
  Report Type: 
  Country: None (occurrence: None)
  Receive Date: 20120322
  Receipt Date: 20120130
  Transmission Date: 20120608
  Serious: Yes (Hospitalization)
  Sender: FDA-Public Use
  Company Number: UTC-015084

PATIENT
  Age: 37 Year
  Sex: Female

DRUGS (4)
  1. REVATIO [Concomitant]
  2. DIGOXIN [Concomitant]
  3. TYVASO [Suspect]
     Indication: PULMONARY ARTERIAL HYPERTENSION
     Dosage: 48 MCG, INHALATION
     Route: 055
     Dates: start: 20120110
  4. PULMICORT [Concomitant]

REACTIONS (1)
  - SYNCOPE [None]
